FAERS Safety Report 12781964 (Version 1)
Quarter: 2016Q3

REPORT INFORMATION
  Report Type: Spontaneous
  Country: US (occurrence: US)
  Receive Date: 20160927
  Receipt Date: 20160927
  Transmission Date: 20161109
  Serious: No
  Sender: FDA-Public Use
  Company Number: US-AMGEN-USASP2016124929

PATIENT
  Age: 56 Year
  Sex: Female

DRUGS (1)
  1. ENBREL [Suspect]
     Active Substance: ETANERCEPT
     Indication: RHEUMATOID ARTHRITIS
     Dosage: 50 MG, QWK
     Route: 058
     Dates: start: 20160826

REACTIONS (5)
  - Headache [Unknown]
  - Rash pruritic [Unknown]
  - Injection site rash [Recovering/Resolving]
  - Nausea [Unknown]
  - Injection site mass [Recovering/Resolving]

NARRATIVE: CASE EVENT DATE: 2016
